FAERS Safety Report 7824123-X (Version None)
Quarter: 2011Q4

REPORT INFORMATION
  Report Type: 
  Country: None (occurrence: None)
  Receive Date: 20111019
  Receipt Date: 20111011
  Transmission Date: 20120403
  Serious: Yes (Hospitalization, Other)
  Sender: FDA-Public Use
  Company Number: US-AMGEN-USASP2011052917

PATIENT
  Age: 31 Year
  Sex: Female
  Weight: 129 kg

DRUGS (16)
  1. DEXAMETHASONE S/PH [Concomitant]
  2. COMPAZINE                          /00013304/ [Concomitant]
  3. CALCIUM CARBONATE [Concomitant]
  4. PULMOCARE                          /00960601/ [Concomitant]
     Dosage: 2 DF, QD
  5. MECLIZINE HCL [Concomitant]
  6. DEPO-PROVERA [Concomitant]
  7. VITAMIN B12                        /01750001/ [Concomitant]
  8. NEXIUM [Concomitant]
  9. SODIUM CHLORIDE [Concomitant]
  10. TRANSDERM SCOP [Concomitant]
  11. TAXOTERE [Concomitant]
  12. DIFLUCAN [Concomitant]
  13. EMEND                              /01627301/ [Concomitant]
  14. PREDNISONE [Concomitant]
  15. PLAQUENIL [Concomitant]
  16. NPLATE [Suspect]
     Indication: IDIOPATHIC THROMBOCYTOPENIC PURPURA
     Dates: start: 20091029

REACTIONS (15)
  - ARRHYTHMIA [None]
  - CONVULSION [None]
  - UNRESPONSIVE TO STIMULI [None]
  - RESPIRATORY ARREST [None]
  - BLOOD CULTURE POSITIVE [None]
  - TONGUE DISORDER [None]
  - CARDIAC ARREST [None]
  - ENCEPHALOPATHY [None]
  - DEVICE RELATED INFECTION [None]
  - SPUTUM CULTURE POSITIVE [None]
  - VOMITING [None]
  - BEDRIDDEN [None]
  - ORAL DISORDER [None]
  - MALNUTRITION [None]
  - INFECTION [None]
